FAERS Safety Report 22294822 (Version 5)
Quarter: 2023Q4

REPORT INFORMATION
  Report Type: Spontaneous
  Country: CA (occurrence: CA)
  Receive Date: 20230508
  Receipt Date: 20231109
  Transmission Date: 20240110
  Serious: Yes (Other)
  Sender: FDA-Public Use
  Company Number: CA-PFIZER INC-202300180081

PATIENT
  Age: 25 Year
  Sex: Female
  Weight: 59.864 kg

DRUGS (4)
  1. XELJANZ [Suspect]
     Active Substance: TOFACITINIB CITRATE
     Indication: Colitis ulcerative
     Dosage: 10 MG, 2X/DAY,FOR 16 WEEKS
     Route: 048
     Dates: start: 20230413, end: 202308
  2. XELJANZ [Suspect]
     Active Substance: TOFACITINIB CITRATE
     Dosage: 5 MG, 2X/DAY (TWICE A DAY FOR 1 MONTH IN AUGUST)
     Route: 048
     Dates: start: 202308, end: 202308
  3. XELJANZ [Suspect]
     Active Substance: TOFACITINIB CITRATE
     Dosage: 10 MG, 2X/DAY
     Route: 048
     Dates: start: 2023
  4. CORTAMINE [Concomitant]
     Dosage: UNK

REACTIONS (5)
  - Rectal haemorrhage [Unknown]
  - Colitis ulcerative [Unknown]
  - Constipation [Unknown]
  - Off label use [Unknown]
  - Product use issue [Unknown]

NARRATIVE: CASE EVENT DATE: 20230101
